FAERS Safety Report 7420182-7 (Version None)
Quarter: 2011Q2

REPORT INFORMATION
  Report Type: 
  Country: None (occurrence: None)
  Receive Date: 20110418
  Receipt Date: 20110412
  Transmission Date: 20111010
  Serious: Yes (Other)
  Sender: FDA-Public Use
  Company Number: SE-PFIZER INC-2011081755

PATIENT
  Sex: Female

DRUGS (3)
  1. TREO COMP [Concomitant]
  2. FONTEX [Concomitant]
  3. XANOR DEPOT [Suspect]
     Indication: GENERALISED ANXIETY DISORDER
     Dosage: 2 MG, UNK

REACTIONS (3)
  - ABNORMAL BEHAVIOUR [None]
  - DAYDREAMING [None]
  - MEMORY IMPAIRMENT [None]
